FAERS Safety Report 14310094 (Version 1)
Quarter: 2017Q4

REPORT INFORMATION
  Report Type: Spontaneous
  Country: PL (occurrence: PL)
  Receive Date: 20171220
  Receipt Date: 20171220
  Transmission Date: 20180321
  Serious: Yes (Life-Threatening, Other)
  Sender: FDA-Public Use
  Company Number: PL-BAUSCH-BL-2017-034983

PATIENT
  Sex: Male

DRUGS (2)
  1. RIBAVIRIN. [Suspect]
     Active Substance: RIBAVIRIN
     Indication: CHRONIC HEPATITIS C
     Route: 065
  2. NATURAL INTERFERON ALFA [Suspect]
     Active Substance: INTERFERON ALFA-N3
     Indication: CHRONIC HEPATITIS C
     Route: 065

REACTIONS (1)
  - Drug ineffective [Unknown]
